FAERS Safety Report 9327073 (Version 1)
Quarter: 2013Q2

REPORT INFORMATION
  Report Type: Spontaneous
  Country: US (occurrence: None)
  Receive Date: 20130530
  Receipt Date: 20130530
  Transmission Date: 20140414
  Serious: Yes (Other)
  Sender: FDA-Public Use
  Company Number: SYM-2013-04206

PATIENT
  Age: 82 Year
  Sex: Female

DRUGS (1)
  1. XENAZINE [Suspect]
     Indication: DYSKINESIA
     Dosage: HALF TABLET ONCE DAILY, PO
     Route: 048
     Dates: start: 20110228

REACTIONS (4)
  - Lethargy [None]
  - Atrial fibrillation [None]
  - Hypertension [None]
  - Drug interaction [None]
